FAERS Safety Report 24743322 (Version 1)
Quarter: 2024Q4

REPORT INFORMATION
  Report Type: Spontaneous
  Country: US (occurrence: None)
  Receive Date: 20241216
  Receipt Date: 20241216
  Transmission Date: 20250115
  Serious: Yes (Hospitalization)
  Sender: Public
  Company Number: None

PATIENT
  Age: 82 Year
  Sex: 0

DRUGS (1)
  1. BREYANZI [Suspect]
     Active Substance: LISOCABTAGENE MARALEUCEL
     Indication: Diffuse large B-cell lymphoma
     Dosage: OTHER FREQUENCY : ONCE;?
     Route: 042
     Dates: start: 20241204, end: 20241204

REACTIONS (5)
  - Neurotoxicity [None]
  - Dysarthria [None]
  - Aphasia [None]
  - Tremor [None]
  - Mental status changes [None]

NARRATIVE: CASE EVENT DATE: 20241209
